FAERS Safety Report 8891015 (Version 7)
Quarter: 2014Q1

REPORT INFORMATION
  Report Type: Report from Study
  Country: AU (occurrence: AU)
  Receive Date: 20121107
  Receipt Date: 20140123
  Transmission Date: 20141002
  Serious: Yes (Death, Hospitalization)
  Sender: FDA-Public Use
  Company Number: AU-ROCHE-CID000000002213024

PATIENT
  Age: 82 Year
  Sex: Male
  Weight: 59.6 kg

DRUGS (7)
  1. BEVACIZUMAB [Suspect]
     Indication: RECTAL CANCER
     Dosage: DATE OF LAST DOSE PRIOR TO ACUTE KIDNEY INJURY: 29/OCT/2012.LAST DOSE PRIOR TO PULMONARY EMBOLI:15/O
     Route: 042
     Dates: start: 20120924, end: 20121030
  2. CAPECITABINE [Suspect]
     Indication: RECTAL CANCER
     Dosage: DATE OF LAST DOSE PRIOR TO ACUTE KIDNEY INJURY: 29/OCT/2012.
     Route: 048
     Dates: start: 20120924, end: 20121030
  3. OXALIPLATIN [Suspect]
     Indication: RECTAL CANCER
     Dosage: DATE OF LAST DOSE PRIOR TO ACUTE KIDNEY INJURY:15/OCT/2012.
     Route: 042
     Dates: start: 20120924, end: 20121030
  4. PERINDOPRIL [Concomitant]
     Route: 065
     Dates: start: 20120924
  5. SOMAC (AUSTRALIA) [Concomitant]
     Route: 065
     Dates: start: 201207
  6. LOPERAMIDE [Concomitant]
     Dosage: PRN
     Route: 065
     Dates: start: 20120814, end: 20121117
  7. LOPERAMIDE [Concomitant]
     Route: 065
     Dates: start: 20120924

REACTIONS (2)
  - Renal failure acute [Fatal]
  - Pulmonary embolism [Unknown]
